FAERS Safety Report 20264485 (Version 9)
Quarter: 2022Q3

REPORT INFORMATION
  Report Type: Report from Study
  Country: US (occurrence: US)
  Receive Date: 20211231
  Receipt Date: 20220817
  Transmission Date: 20221027
  Serious: No
  Sender: FDA-Public Use
  Company Number: US-NOVARTISTESTPH-NVSC2021US300245

PATIENT
  Age: 65 Year
  Sex: Female

DRUGS (2)
  1. ENTRESTO [Suspect]
     Active Substance: SACUBITRIL\VALSARTAN
     Indication: Product used for unknown indication
     Dosage: 1 DOSAGE FORM, BID, (49/51 MG: SACUBITRIL 48.6MG, VALSARTAN 51.4MG), 100 MG
     Route: 048
     Dates: start: 20211214
  2. ENTRESTO [Suspect]
     Active Substance: SACUBITRIL\VALSARTAN
     Dosage: 1 DOSAGE FORM, BID (97.103 MG)
     Route: 048

REACTIONS (9)
  - Fatigue [Unknown]
  - Hypotension [Recovered/Resolved]
  - Dizziness [Recovered/Resolved]
  - Decreased appetite [Unknown]
  - Blood pressure fluctuation [Unknown]
  - Ejection fraction abnormal [Unknown]
  - Depression [Recovered/Resolved]
  - Dizziness [Not Recovered/Not Resolved]
  - Incorrect dose administered [Unknown]

NARRATIVE: CASE EVENT DATE: 20211201
